FAERS Safety Report 6264803-3 (Version None)
Quarter: 2009Q3

REPORT INFORMATION
  Report Type: 
  Country: None (occurrence: None)
  Receive Date: 20090710
  Receipt Date: 20090706
  Transmission Date: 20100115
  Serious: Yes (Other)
  Sender: FDA-Public Use
  Company Number: FR-B.I. PHARMACEUTICALS,INC./RIDGEFIELD-2008-FF-00779FF

PATIENT
  Age: 40 Year
  Sex: Female

DRUGS (1)
  1. SIFROL [Suspect]
     Indication: RESTLESS LEGS SYNDROME
     Dosage: 0.18 MG
     Route: 048
     Dates: start: 20080901, end: 20081020

REACTIONS (1)
  - ABORTION SPONTANEOUS [None]
